FAERS Safety Report 6137597-X (Version None)
Quarter: 2009Q1

REPORT INFORMATION
  Report Type: 
  Country: None (occurrence: None)
  Receive Date: 20090327
  Receipt Date: 20090327
  Transmission Date: 20090719
  Serious: Yes (Other)
  Sender: FDA-Public Use
  Company Number: None

PATIENT
  Sex: Male
  Weight: 102.5129 kg

DRUGS (1)
  1. VANCOMYCIN [Suspect]
     Dosage: 1.25GM Q 12 H IV
     Route: 042

REACTIONS (1)
  - NEUTROPENIA [None]
